FAERS Safety Report 9917476 (Version 1)
Quarter: 2014Q1

REPORT INFORMATION
  Report Type: Spontaneous
  Country: US (occurrence: US)
  Receive Date: 20140221
  Receipt Date: 20140221
  Transmission Date: 20141002
  Serious: No
  Sender: FDA-Public Use
  Company Number: US-009507513-1402USA010647

PATIENT
  Age: 81 Year
  Sex: Female

DRUGS (1)
  1. OXYTROL FOR WOMEN [Suspect]
     Indication: PRODUCT USED FOR UNKNOWN INDICATION
     Dosage: UNK, UNKNOWN
     Route: 062
     Dates: start: 20131107, end: 20140201

REACTIONS (6)
  - Skin discolouration [Unknown]
  - Hypersensitivity [Unknown]
  - Dizziness [Unknown]
  - Pruritus [Unknown]
  - Erythema [Unknown]
  - Drug effect decreased [Unknown]
